FAERS Safety Report 11988698 (Version 2)
Quarter: 2016Q2

REPORT INFORMATION
  Report Type: Report from Study
  Country: CA (occurrence: CA)
  Receive Date: 20160202
  Receipt Date: 20160505
  Transmission Date: 20160815
  Serious: Yes (Death, Hospitalization, Other)
  Sender: FDA-Public Use
  Company Number: PHHY2013CA071569

PATIENT
  Age: 66 Year
  Sex: Female

DRUGS (4)
  1. PAZOPANIB [Concomitant]
     Active Substance: PAZOPANIB
     Indication: PRODUCT USED FOR UNKNOWN INDICATION
     Dosage: 4 DF, QD (4 TABLETS, DAILY)
     Route: 048
  2. SANDOSTATIN [Suspect]
     Active Substance: OCTREOTIDE ACETATE
     Indication: NEUROENDOCRINE CARCINOMA METASTATIC
     Dosage: 100 UG, ONCE/SINGLE (TEST DOSE)
     Route: 058
     Dates: start: 20130612, end: 20130612
  3. SANDOSTATIN LAR DEPOT [Suspect]
     Active Substance: OCTREOTIDE ACETATE
     Dosage: 30 MG, EVERY 2 WEEKS
     Route: 030
  4. SANDOSTATIN LAR DEPOT [Suspect]
     Active Substance: OCTREOTIDE ACETATE
     Indication: NEUROENDOCRINE CARCINOMA METASTATIC
     Dosage: 30 MG, QMO
     Route: 030
     Dates: start: 20130618

REACTIONS (39)
  - Hypertension [Recovered/Resolved]
  - Hepatic enzyme increased [Recovered/Resolved]
  - Arthritis [Unknown]
  - Pain in extremity [Not Recovered/Not Resolved]
  - Feeling abnormal [Unknown]
  - Injection site nodule [Recovering/Resolving]
  - Inappropriate schedule of drug administration [Unknown]
  - Haematuria [Unknown]
  - Arthralgia [Unknown]
  - Quality of life decreased [Unknown]
  - Musculoskeletal pain [Unknown]
  - Hypoglycaemia [Unknown]
  - Diarrhoea [Not Recovered/Not Resolved]
  - Drug ineffective [Unknown]
  - Death [Fatal]
  - Blood pressure systolic increased [Unknown]
  - Anxiety [Unknown]
  - Mass [Unknown]
  - Back pain [Unknown]
  - Neuralgia [Unknown]
  - Vomiting [Unknown]
  - Tumour marker increased [Unknown]
  - Fluid retention [Unknown]
  - Rash [Unknown]
  - Injection site erythema [Recovering/Resolving]
  - Malignant neoplasm progression [Unknown]
  - Anxiety disorder [Unknown]
  - Pain of skin [Unknown]
  - Nausea [Unknown]
  - Injection site mass [Recovering/Resolving]
  - Neoplasm [Unknown]
  - Lethargy [Unknown]
  - Injection site pain [Recovering/Resolving]
  - Fatigue [Unknown]
  - Blood pressure increased [Recovered/Resolved]
  - Limb discomfort [Not Recovered/Not Resolved]
  - Tremor [Unknown]
  - Asthenia [Unknown]
  - Pruritus [Unknown]

NARRATIVE: CASE EVENT DATE: 20130718
